FAERS Safety Report 8325329-6 (Version None)
Quarter: 2012Q2

REPORT INFORMATION
  Report Type: 
  Country: None (occurrence: None)
  Receive Date: 20120427
  Receipt Date: 20120418
  Transmission Date: 20120825
  Serious: Yes (Other)
  Sender: FDA-Public Use
  Company Number: EU-2012-10123

PATIENT
  Age: 73 Year
  Sex: Male
  Weight: 116 kg

DRUGS (1)
  1. CILOSTAZOL [Suspect]
     Indication: PERIPHERAL VASCULAR DISORDER
     Dosage: 100 MG MILLIGRAM(S), ORAL
     Route: 048
     Dates: start: 20030101, end: 20120402

REACTIONS (1)
  - ARRHYTHMIA [None]
